FAERS Safety Report 8219794-2 (Version None)
Quarter: 2012Q1

REPORT INFORMATION
  Report Type: 
  Country: None (occurrence: None)
  Receive Date: 20120319
  Receipt Date: 20120312
  Transmission Date: 20120608
  Serious: Yes (Hospitalization)
  Sender: FDA-Public Use
  Company Number: UA-ABBOTT-12P-269-0910084-00

PATIENT
  Age: 62 Year
  Sex: Male

DRUGS (4)
  1. KETOPROFEN [Concomitant]
     Indication: ANAESTHESIA
     Route: 042
     Dates: start: 20120221, end: 20120221
  2. SEVOFLURANE [Suspect]
     Indication: RADICAL PROSTATECTOMY
     Route: 055
     Dates: start: 20120221, end: 20120221
  3. DEXALGIN [Concomitant]
     Indication: ANAESTHESIA
     Route: 042
     Dates: start: 20120221, end: 20120221
  4. INFUSIONAL THERAPY [Concomitant]
     Indication: INFUSION
     Route: 042
     Dates: start: 20120221, end: 20120221

REACTIONS (6)
  - RENAL FAILURE ACUTE [None]
  - ASPARTATE AMINOTRANSFERASE INCREASED [None]
  - TUBULOINTERSTITIAL NEPHRITIS [None]
  - ALANINE AMINOTRANSFERASE INCREASED [None]
  - LEUKOCYTOSIS [None]
  - RENAL DISORDER [None]
